FAERS Safety Report 5636351-2 (Version None)
Quarter: 2008Q1

REPORT INFORMATION
  Report Type: 
  Country: None (occurrence: None)
  Receive Date: 20080225
  Receipt Date: 20080221
  Transmission Date: 20080703
  Serious: Yes (Other)
  Sender: FDA-Public Use
  Company Number: PHNU2008DE01075

PATIENT
  Sex: Male

DRUGS (4)
  1. RASILEZ [Suspect]
     Indication: HYPERTENSION
     Dosage: 150 MG/D
     Route: 048
     Dates: start: 20080201
  2. ANGIOTENSIN CONVERTING ENZYME BLOCKERS [Concomitant]
     Indication: HYPERTENSION
     Dates: start: 20070201
  3. LASIX [Concomitant]
     Indication: HYPERTENSION
     Dates: start: 20070201
  4. EBRANTIL [Concomitant]
     Indication: HYPERTENSION
     Dates: start: 20070201

REACTIONS (1)
  - ATRIAL FIBRILLATION [None]
